FAERS Safety Report 12571548 (Version 1)
Quarter: 2016Q3

REPORT INFORMATION
  Report Type: Spontaneous
  Country: US (occurrence: US)
  Receive Date: 20160719
  Receipt Date: 20160719
  Transmission Date: 20161109
  Serious: No
  Sender: FDA-Public Use
  Company Number: US-BAUSCH-BL-2016-009429

PATIENT
  Age: 58 Year
  Sex: Female

DRUGS (1)
  1. XIFAXAN [Suspect]
     Active Substance: RIFAXIMIN
     Indication: NAUSEA
     Route: 048
     Dates: start: 201604

REACTIONS (7)
  - Dry mouth [Recovered/Resolved]
  - Headache [Recovering/Resolving]
  - Constipation [Recovered/Resolved]
  - Abdominal distension [Recovered/Resolved]
  - Fatigue [Recovered/Resolved]
  - Flatulence [Recovering/Resolving]
  - Off label use [Unknown]
